FAERS Safety Report 10060714 (Version 1)
Quarter: 2014Q2

REPORT INFORMATION
  Report Type: Spontaneous
  Country: US (occurrence: US)
  Receive Date: 20140404
  Receipt Date: 20140404
  Transmission Date: 20141212
  Serious: No
  Sender: FDA-Public Use
  Company Number: US-TEVA-468281USA

PATIENT
  Sex: Female

DRUGS (1)
  1. QNASL [Suspect]
     Indication: RHINITIS ALLERGIC
     Route: 045

REACTIONS (2)
  - Feeling abnormal [Recovered/Resolved]
  - Tongue disorder [Recovered/Resolved]
